FAERS Safety Report 7120707-5 (Version None)
Quarter: 2010Q4

REPORT INFORMATION
  Report Type: 
  Country: None (occurrence: None)
  Receive Date: 20101124
  Receipt Date: 20101110
  Transmission Date: 20110411
  Serious: Yes (Other)
  Sender: FDA-Public Use
  Company Number: US-BAYER-201032416NA

PATIENT
  Age: 36 Year
  Sex: Female
  Weight: 68 kg

DRUGS (5)
  1. YAZ [Suspect]
     Indication: CONTRACEPTION
     Route: 048
     Dates: start: 20080801, end: 20090901
  2. LEXAPRO [Concomitant]
     Indication: DEPRESSION
     Dates: start: 20020101, end: 20090101
  3. CRESTOR [Concomitant]
  4. CYMBALTA [Concomitant]
     Indication: DEPRESSION
     Dates: start: 20100101
  5. IBUPROFEN [Concomitant]

REACTIONS (2)
  - CHOLELITHIASIS [None]
  - GALLBLADDER DISORDER [None]
